FAERS Safety Report 6097420-9 (Version None)
Quarter: 2009Q1

REPORT INFORMATION
  Report Type: 
  Country: None (occurrence: None)
  Receive Date: 20090227
  Receipt Date: 20080429
  Transmission Date: 20090719
  Serious: No
  Sender: FDA-Public Use
  Company Number: A0721639A

PATIENT
  Age: 31 Year
  Sex: Male
  Weight: 56.8 kg

DRUGS (6)
  1. IMITREX [Suspect]
     Indication: MIGRAINE
     Route: 065
  2. NAPROXEN [Suspect]
  3. TOPAMAX [Concomitant]
  4. AMITRIPTYLINE [Concomitant]
  5. NAPROXEN [Concomitant]
  6. IBUPROFEN [Concomitant]

REACTIONS (1)
  - DRUG SCREEN POSITIVE [None]
